FAERS Safety Report 26009496 (Version 1)
Quarter: 2025Q4

REPORT INFORMATION
  Report Type: Spontaneous
  Country: US (occurrence: US)
  Receive Date: 20251107
  Receipt Date: 20251107
  Transmission Date: 20260117
  Serious: No
  Sender: LEO PHARM
  Company Number: US-LEO Pharma-384024

PATIENT
  Age: 46 Year
  Sex: Male

DRUGS (1)
  1. ADBRY [Suspect]
     Active Substance: TRALOKINUMAB-LDRM
     Indication: Eczema
     Dosage: 300 MG PEN, INJECT 2 PENS SUBCUTANEOUS ON DAY 1 (ESTIMATE 10/28/25), THEN INJECT 1 PEN EVERY 14 DAYS
     Route: 058
     Dates: start: 20251028

REACTIONS (1)
  - Pruritus [Not Recovered/Not Resolved]
